FAERS Safety Report 20385812 (Version 1)
Quarter: 2022Q1

REPORT INFORMATION
  Report Type: Spontaneous
  Country: US (occurrence: US)
  Receive Date: 20220127
  Receipt Date: 20220127
  Transmission Date: 20220423
  Serious: No
  Sender: FDA-Public Use
  Company Number: US-ALLERGAN-2126036US

PATIENT
  Sex: Female

DRUGS (1)
  1. BOTOX [Suspect]
     Active Substance: ONABOTULINUMTOXINA
     Indication: Migraine
     Dosage: 80 UNITS, SINGLE
     Dates: start: 20210711, end: 20210711

REACTIONS (2)
  - Tinnitus [Recovering/Resolving]
  - Auditory disorder [Unknown]

NARRATIVE: CASE EVENT DATE: 20210714
